FAERS Safety Report 7394852-3 (Version None)
Quarter: 2011Q2

REPORT INFORMATION
  Report Type: 
  Country: None (occurrence: None)
  Receive Date: 20110405
  Receipt Date: 20110329
  Transmission Date: 20111010
  Serious: Yes (Congenital Anomaly)
  Sender: FDA-Public Use
  Company Number: A0914872A

PATIENT
  Sex: Female
  Weight: 3 kg

DRUGS (1)
  1. PAXIL [Suspect]
     Indication: DEPRESSION
     Dosage: 20MG PER DAY
     Route: 064

REACTIONS (3)
  - FOOT DEFORMITY [None]
  - TALIPES [None]
  - DRUG EXPOSURE DURING PREGNANCY [None]
